FAERS Safety Report 6543134-8 (Version None)
Quarter: 2010Q1

REPORT INFORMATION
  Report Type: 
  Country: None (occurrence: None)
  Receive Date: 20100120
  Receipt Date: 20100115
  Transmission Date: 20100710
  Serious: Yes (Death)
  Sender: FDA-Public Use
  Company Number: PHHY2010AR02400

PATIENT
  Sex: Male

DRUGS (1)
  1. EXELON [Suspect]
     Dosage: 1 PATCH (10 CM) DAILY
     Route: 062
     Dates: start: 20091101

REACTIONS (2)
  - CARDIAC ARREST [None]
  - NOSOCOMIAL INFECTION [None]
